FAERS Safety Report 7681606-3 (Version None)
Quarter: 2011Q3

REPORT INFORMATION
  Report Type: 
  Country: None (occurrence: None)
  Receive Date: 20110812
  Receipt Date: 20110804
  Transmission Date: 20111222
  Serious: Yes (Other)
  Sender: FDA-Public Use
  Company Number: PHHY2011FR70183

PATIENT
  Sex: Female

DRUGS (5)
  1. PROPRANOLOL [Concomitant]
     Dosage: 160 MG, UNK
  2. TEGRETOL [Suspect]
     Dosage: 150 MG, QD
     Route: 048
  3. LYRICA [Suspect]
     Dosage: 50 MG, UNK
     Route: 048
     Dates: start: 20110603, end: 20110613
  4. LYRICA [Suspect]
     Dosage: 25 MG, DAILY
     Route: 048
     Dates: end: 20110613
  5. CLONAZEPAM [Suspect]
     Dosage: 2 MG, TID
     Route: 048

REACTIONS (2)
  - ASTHENIA [None]
  - APATHY [None]
